FAERS Safety Report 19803762 (Version 1)
Quarter: 2021Q3

REPORT INFORMATION
  Report Type: Spontaneous
  Country: IT (occurrence: IT)
  Receive Date: 20210908
  Receipt Date: 20210908
  Transmission Date: 20211014
  Serious: Yes (Life-Threatening)
  Sender: FDA-Public Use
  Company Number: IT-ACCORD-237920

PATIENT
  Age: 58 Year
  Sex: Female

DRUGS (1)
  1. CISPLATIN ACCORD [Suspect]
     Active Substance: CISPLATIN
     Indication: HEPATOBILIARY CANCER
     Route: 042
     Dates: start: 20210819, end: 20210819

REACTIONS (2)
  - Acute respiratory failure [Recovered/Resolved]
  - Oxygen saturation decreased [Recovered/Resolved]

NARRATIVE: CASE EVENT DATE: 20210819
